FAERS Safety Report 6656604-9 (Version None)
Quarter: 2010Q1

REPORT INFORMATION
  Report Type: 
  Country: None (occurrence: None)
  Receive Date: 20100329
  Receipt Date: 20100317
  Transmission Date: 20100710
  Serious: Yes (Other)
  Sender: FDA-Public Use
  Company Number: US-PFIZER INC-2009306295

PATIENT
  Sex: Male
  Weight: 65.76 kg

DRUGS (11)
  1. LYRICA [Suspect]
     Indication: NEUROPATHY PERIPHERAL
     Dosage: UNK
     Dates: start: 20070101, end: 20091220
  2. LYRICA [Suspect]
     Dosage: FREQUENCY: 2X/DAY,
  3. CHANTIX [Suspect]
     Indication: SMOKING CESSATION THERAPY
     Dosage: 0.5 MG, 1X/DAY
     Dates: start: 20080101, end: 20091201
  4. CHANTIX [Suspect]
     Dosage: 1 MG, 2X/DAY
     Dates: end: 20091201
  5. ACTOS [Concomitant]
     Dosage: 15 MG, UNK
  6. COREG [Concomitant]
     Indication: HYPERTENSION
     Dosage: 6.25 MG, 2X/DAY
  7. AVAPRO [Concomitant]
     Dosage: 300 MG, UNK
  8. LORCET-HD [Concomitant]
     Dosage: 7.5 MG, 4X/DAY
  9. FENTANYL [Concomitant]
     Dosage: UNK
     Route: 062
  10. LIPITOR [Concomitant]
     Indication: BLOOD CHOLESTEROL INCREASED
     Dosage: 40 MG, UNK
  11. ZANTAC [Concomitant]
     Indication: GASTRIC DISORDER
     Dosage: 150 MG, 2X/DAY

REACTIONS (14)
  - AGITATION [None]
  - ARTERIAL STENOSIS [None]
  - BEDRIDDEN [None]
  - DEPRESSED MOOD [None]
  - DYSPHAGIA [None]
  - HOSTILITY [None]
  - HYPOKINESIA [None]
  - OEDEMA PERIPHERAL [None]
  - PHARYNGEAL OEDEMA [None]
  - SPEECH DISORDER [None]
  - STENT PLACEMENT [None]
  - SUICIDAL IDEATION [None]
  - SWOLLEN TONGUE [None]
  - TRANSIENT ISCHAEMIC ATTACK [None]
